FAERS Safety Report 24791549 (Version 2)
Quarter: 2025Q4

REPORT INFORMATION
  Report Type: Spontaneous
  Country: EU (occurrence: EU)
  Receive Date: 20241231
  Receipt Date: 20251126
  Transmission Date: 20260117
  Serious: Yes (Disabling, Other)
  Sender: SANDOZ
  Company Number: EU-SANDOZ-SDZ2024SI104082

PATIENT
  Age: 66 Year
  Sex: Female

DRUGS (5)
  1. METHOTREXATE [Suspect]
     Active Substance: METHOTREXATE
     Indication: Felty^s syndrome
     Dosage: 20 MG, QW
     Route: 065
  2. CHOLECALCIFEROL [Concomitant]
     Active Substance: CHOLECALCIFEROL
     Indication: Felty^s syndrome
     Dosage: 7000 IU, QW
     Route: 065
  3. FILGRASTIM [Concomitant]
     Active Substance: FILGRASTIM
     Indication: Felty^s syndrome
     Dosage: OCCASIONALLY, FREQUENCY- ASNECESSARY
     Route: 065
  4. FOLIC ACID [Concomitant]
     Active Substance: FOLIC ACID
     Indication: Felty^s syndrome
     Dosage: 10 MG, QD
     Route: 065
  5. FOLIC ACID [Concomitant]
     Active Substance: FOLIC ACID
     Dosage: UNK
     Route: 065

REACTIONS (2)
  - Bone disorder [Recovering/Resolving]
  - Stress fracture [Recovering/Resolving]
